FAERS Safety Report 22133218 (Version 1)
Quarter: 2023Q1

REPORT INFORMATION
  Report Type: Spontaneous
  Country: US (occurrence: US)
  Receive Date: 20230324
  Receipt Date: 20230324
  Transmission Date: 20230418
  Serious: Yes (Life-Threatening, Hospitalization)
  Sender: FDA-Public Use
  Company Number: US-STRIDES ARCOLAB LIMITED-2023SP004272

PATIENT
  Age: 54 Year
  Sex: Male

DRUGS (3)
  1. METHOTREXATE [Suspect]
     Active Substance: METHOTREXATE
     Indication: Systemic scleroderma
     Dosage: UNK, UNTIL REACHED A DOSE OF 20 MG EVERY WEEK
     Route: 065
  2. METHOTREXATE [Suspect]
     Active Substance: METHOTREXATE
     Dosage: UNK, RE INITIATED
     Route: 065
  3. METHOTREXATE [Suspect]
     Active Substance: METHOTREXATE
     Dosage: 20 MILLIGRAM, PER WEEK
     Route: 048

REACTIONS (8)
  - Cardiotoxicity [Recovered/Resolved]
  - Cardiomyopathy acute [Unknown]
  - Ejection fraction decreased [Recovered/Resolved]
  - Cardiac failure [Unknown]
  - Myocardial necrosis [Unknown]
  - Renal impairment [Unknown]
  - COVID-19 [Unknown]
  - Off label use [Unknown]
